FAERS Safety Report 20454431 (Version 1)
Quarter: 2022Q1

REPORT INFORMATION
  Report Type: Spontaneous
  Country: US (occurrence: None)
  Receive Date: 20220209
  Receipt Date: 20220209
  Transmission Date: 20220423
  Serious: Yes (Life-Threatening)
  Sender: FDA-Public Use
  Company Number: None

PATIENT
  Age: 34 Year
  Sex: Female
  Weight: 123 kg

DRUGS (8)
  1. BARICITINIB [Suspect]
     Active Substance: BARICITINIB
     Indication: COVID-19
     Dosage: FREQUENCY : AT BEDTIME;?
     Route: 048
     Dates: start: 20220121, end: 20220204
  2. BARICITINIB [Suspect]
     Active Substance: BARICITINIB
     Indication: Respiratory failure
  3. LOVENOX [Concomitant]
     Active Substance: ENOXAPARIN SODIUM
     Dates: start: 20220203
  4. INSULIN LISPRO [Concomitant]
     Active Substance: INSULIN LISPRO
     Dates: start: 20220122
  5. LANSOPRAZOLE [Concomitant]
     Active Substance: LANSOPRAZOLE
     Dates: start: 20220127
  6. DILAUDID [Concomitant]
     Active Substance: HYDROMORPHONE HYDROCHLORIDE
     Dates: start: 20220131
  7. PROPOFOL [Concomitant]
     Active Substance: PROPOFOL
     Dates: start: 20220130
  8. SPIRONOLACTONE [Concomitant]
     Active Substance: SPIRONOLACTONE
     Dates: start: 20220127, end: 20220204

REACTIONS (2)
  - Swollen tongue [None]
  - Protrusion tongue [None]

NARRATIVE: CASE EVENT DATE: 20220205
